FAERS Safety Report 23743826 (Version 1)
Quarter: 2024Q2

REPORT INFORMATION
  Report Type: Spontaneous
  Country: US (occurrence: US)
  Receive Date: 20240415
  Receipt Date: 20240415
  Transmission Date: 20240716
  Serious: Yes (Other)
  Sender: FDA-Public Use
  Company Number: US-NOVOPROD-1191852

PATIENT

DRUGS (1)
  1. OZEMPIC [Suspect]
     Active Substance: SEMAGLUTIDE
     Indication: Product used for unknown indication
     Dosage: 0.25 MG
     Route: 058

REACTIONS (6)
  - Loss of consciousness [Unknown]
  - Blindness [Unknown]
  - Illness [Unknown]
  - Peripheral swelling [Unknown]
  - Drug ineffective [Unknown]
  - Product dispensing error [Unknown]
